FAERS Safety Report 4967341-0 (Version None)
Quarter: 2006Q2

REPORT INFORMATION
  Report Type: 
  Country: None (occurrence: None)
  Receive Date: 20060410
  Receipt Date: 20060407
  Transmission Date: 20061013
  Serious: Yes (Other)
  Sender: FDA-Public Use
  Company Number: US-JNJFOC-20060301286

PATIENT
  Sex: Male
  Weight: 77.57 kg

DRUGS (5)
  1. LEVAQUIN [Suspect]
  2. LEVAQUIN [Suspect]
     Indication: PNEUMONIA
  3. LEVAQUIN [Suspect]
     Route: 042
  4. LIPITOR [Concomitant]
     Indication: BLOOD CHOLESTEROL INCREASED
  5. AVAPRO [Concomitant]
     Indication: HYPERTENSION

REACTIONS (6)
  - CANDIDIASIS [None]
  - OEDEMA PERIPHERAL [None]
  - PLATELET COUNT DECREASED [None]
  - RASH [None]
  - TUMOUR MARKER INCREASED [None]
  - URTICARIA [None]
